FAERS Safety Report 6381733-7 (Version None)
Quarter: 2009Q3

REPORT INFORMATION
  Report Type: 
  Country: None (occurrence: None)
  Receive Date: 20090930
  Receipt Date: 20090921
  Transmission Date: 20100115
  Serious: Yes (Hospitalization, Other)
  Sender: FDA-Public Use
  Company Number: PHHO2008US04481

PATIENT
  Sex: Female
  Weight: 123.6 kg

DRUGS (14)
  1. CIBADREX T29368+ [Suspect]
     Indication: HYPERTENSION
     Dosage: LEVEL 1
     Route: 048
     Dates: start: 20040630, end: 20060707
  2. CIBADREX T29368+ [Suspect]
     Dosage: NO TREATMENT
     Dates: start: 20060708
  3. PLAVIX [Concomitant]
  4. LASIX [Concomitant]
     Indication: OEDEMA
  5. ASPIRIN [Concomitant]
     Indication: CORONARY ARTERY DISEASE
  6. PRAVACHOL [Concomitant]
     Indication: HYPERLIPIDAEMIA
  7. COUMADIN [Concomitant]
  8. NEURONTIN [Concomitant]
     Indication: NEUROPATHY PERIPHERAL
  9. ZOLOFT [Concomitant]
     Indication: DEPRESSION
  10. TOPROL-XL [Concomitant]
     Indication: HYPERTENSION
  11. ATROVENT [Concomitant]
     Indication: ASTHMA
  12. PREVACID [Concomitant]
     Indication: GASTROOESOPHAGEAL REFLUX DISEASE
  13. COLACE [Concomitant]
  14. NITROGLYCERIN [Concomitant]
     Indication: ANGINA PECTORIS

REACTIONS (4)
  - ANAEMIA [None]
  - BLOOD POTASSIUM INCREASED [None]
  - FALL [None]
  - SYNCOPE [None]
